FAERS Safety Report 15155643 (Version 5)
Quarter: 2018Q3

REPORT INFORMATION
  Report Type: Spontaneous
  Country: JP (occurrence: JP)
  Receive Date: 20180717
  Receipt Date: 20180816
  Transmission Date: 20181010
  Serious: Yes (Hospitalization)
  Sender: FDA-Public Use
  Company Number: JP-PFIZER INC-2018285257

PATIENT
  Sex: Male

DRUGS (22)
  1. RISPERDAL [Suspect]
     Active Substance: RISPERIDONE
     Dosage: 4 MG, 2X/DAY
     Route: 065
     Dates: start: 20170817
  2. RISPERDAL [Suspect]
     Active Substance: RISPERIDONE
     Dosage: 8 MG/DAY
  3. LANDSEN [Suspect]
     Active Substance: CLONAZEPAM
     Indication: AFFECTIVE DISORDER
  4. BELSOMRA [Concomitant]
     Active Substance: SUVOREXANT
     Dosage: UNK
  5. AMLODIN [Suspect]
     Active Substance: AMLODIPINE BESYLATE
     Indication: HYPERTENSION
     Dosage: 10 MG, DAILY
     Route: 048
  6. AKINETON [Suspect]
     Active Substance: BIPERIDEN HYDROCHLORIDE
     Dosage: 6 MG, DAILY
     Route: 048
  7. EQUA [Suspect]
     Active Substance: VILDAGLIPTIN
     Dosage: 50 MG, 2X/DAY
     Route: 048
  8. ACTOS [Concomitant]
     Active Substance: PIOGLITAZONE HYDROCHLORIDE
     Dosage: UNK
  9. AKINETON [Suspect]
     Active Substance: BIPERIDEN HYDROCHLORIDE
     Indication: MOOD ALTERED
     Dosage: 2 MG, 2X/DAY
     Route: 048
  10. AKINETON [Suspect]
     Active Substance: BIPERIDEN HYDROCHLORIDE
     Indication: FEELING ABNORMAL
     Dosage: 2 MG, UNK
     Route: 048
  11. RISPERDAL [Suspect]
     Active Substance: RISPERIDONE
     Dosage: 4 MG, UNK
     Route: 065
  12. DIOVAN [Suspect]
     Active Substance: VALSARTAN
     Dosage: 80 MG, 2X/DAY
     Route: 048
  13. MUCOSTA [Concomitant]
     Active Substance: REBAMIPIDE
     Dosage: UNK
  14. METGLUCO [Suspect]
     Active Substance: METFORMIN HYDROCHLORIDE
     Dosage: 2000 MG, DAILY
     Route: 048
  15. SEDIEL [Suspect]
     Active Substance: TANDOSPIRONE
     Dosage: 60 MG, DAILY
     Route: 048
  16. RISPERDAL [Suspect]
     Active Substance: RISPERIDONE
     Dosage: 16 MG, UNK
     Route: 065
     Dates: start: 20180221
  17. LOXONIN [Suspect]
     Active Substance: LOXOPROFEN SODIUM
     Dosage: UNK
     Route: 048
  18. SILECE [Concomitant]
     Active Substance: FLUNITRAZEPAM
     Dosage: UNK
  19. LANDSEN [Suspect]
     Active Substance: CLONAZEPAM
     Indication: PANIC DISORDER
     Dosage: 4 MG, 1X/DAY (HS)
     Route: 048
  20. LANDSEN [Suspect]
     Active Substance: CLONAZEPAM
     Indication: AKATHISIA
  21. METGLUCO [Suspect]
     Active Substance: METFORMIN HYDROCHLORIDE
     Dosage: UNK
     Route: 048
     Dates: end: 201510
  22. NEXIUM [Concomitant]
     Active Substance: ESOMEPRAZOLE MAGNESIUM
     Dosage: UNK

REACTIONS (14)
  - Arthralgia [Recovered/Resolved]
  - Somnolence [Unknown]
  - Amnesia [Unknown]
  - Product use issue [Unknown]
  - Ulcer haemorrhage [Recovered/Resolved]
  - Salivary hypersecretion [Unknown]
  - Dependence [Unknown]
  - Nausea [Unknown]
  - Asthenia [Not Recovered/Not Resolved]
  - Salivary hypersecretion [Not Recovered/Not Resolved]
  - Dry mouth [Not Recovered/Not Resolved]
  - Abdominal discomfort [Unknown]
  - Akathisia [Recovered/Resolved]
  - Dizziness [Unknown]

NARRATIVE: CASE EVENT DATE: 20151005
